FAERS Safety Report 8581628-4 (Version None)
Quarter: 2012Q3

REPORT INFORMATION
  Report Type: 
  Country: None (occurrence: None)
  Receive Date: 20120801
  Receipt Date: 20120801
  Transmission Date: 20120928
  Serious: Yes (Hospitalization, Other)
  Sender: FDA-Public Use
  Company Number: None

PATIENT
  Sex: Female

DRUGS (10)
  1. TRIAZOLAM [Suspect]
     Indication: BIPOLAR DISORDER
     Dosage: .25MG ONCE AT NIGHT PO
     Route: 048
     Dates: start: 20120515, end: 20120726
  2. TRIAZOLAM [Suspect]
     Indication: INSOMNIA
     Dosage: .25MG ONCE AT NIGHT PO
     Route: 048
     Dates: start: 20120515, end: 20120726
  3. LAMOTIZENE [Concomitant]
  4. OLANZAPINE [Concomitant]
  5. LIPITOR [Concomitant]
  6. PLAVIX [Concomitant]
  7. DILIZIPANE [Concomitant]
  8. ASPIRIN [Concomitant]
  9. ALPRAZOLAM [Concomitant]
  10. DEXILNT [Concomitant]

REACTIONS (3)
  - DYSGEUSIA [None]
  - BEDRIDDEN [None]
  - ASTHENIA [None]
